FAERS Safety Report 25450869 (Version 1)
Quarter: 2025Q2

REPORT INFORMATION
  Report Type: Spontaneous
  Country: US (occurrence: None)
  Receive Date: 20250618
  Receipt Date: 20250618
  Transmission Date: 20250717
  Serious: Yes (Other)
  Sender: FDA-CTU
  Company Number: None

PATIENT
  Age: 42 Year
  Sex: Female

DRUGS (1)
  1. COPAXONE [Suspect]
     Active Substance: GLATIRAMER ACETATE
     Indication: Multiple sclerosis
     Dosage: FREQUENCY : 3 TIMES A WEEK;?

REACTIONS (9)
  - Multiple sclerosis [None]
  - Fall [None]
  - Limb discomfort [None]
  - Fatigue [None]
  - Multiple sclerosis relapse [None]
  - Cognitive disorder [None]
  - Formication [None]
  - Feeling abnormal [None]
  - Cardiac disorder [None]
